FAERS Safety Report 10244691 (Version 1)
Quarter: 2014Q2

REPORT INFORMATION
  Report Type: Spontaneous
  Country: US (occurrence: US)
  Receive Date: 20140618
  Receipt Date: 20140618
  Transmission Date: 20141212
  Serious: Yes (Hospitalization)
  Sender: FDA-Public Use
  Company Number: US-BRISTOL-MYERS SQUIBB COMPANY-20979365

PATIENT
  Age: 61 Year
  Sex: Female

DRUGS (3)
  1. ABILIFY [Suspect]
  2. PAXIL [Concomitant]
  3. CELEXA [Concomitant]

REACTIONS (2)
  - Dysphoria [Recovering/Resolving]
  - Extrapyramidal disorder [Recovering/Resolving]
